FAERS Safety Report 7365884-6 (Version None)
Quarter: 2011Q1

REPORT INFORMATION
  Report Type: 
  Country: None (occurrence: None)
  Receive Date: 20110322
  Receipt Date: 20110311
  Transmission Date: 20110831
  Serious: Yes (Other)
  Sender: FDA-Public Use
  Company Number: JP-ASTELLAS-2011JP001850

PATIENT
  Age: 58 Year
  Sex: Male

DRUGS (2)
  1. PREDNISOLONE [Suspect]
     Dosage: 50 MG, UNKNOWN/D
     Route: 065
  2. PROGRAF [Suspect]
     Indication: MYASTHENIA GRAVIS

REACTIONS (2)
  - FUNGAL SKIN INFECTION [None]
  - CATARACT [None]
